FAERS Safety Report 6962886-6 (Version None)
Quarter: 2010Q3

REPORT INFORMATION
  Report Type: 
  Country: None (occurrence: None)
  Receive Date: 20100902
  Receipt Date: 20100820
  Transmission Date: 20110219
  Serious: No
  Sender: FDA-Public Use
  Company Number: US-PFIZER INC-2010106114

PATIENT
  Sex: Female

DRUGS (2)
  1. ZOLOFT [Suspect]
     Indication: ANXIETY
     Dosage: UNK
     Route: 048
     Dates: start: 20040101, end: 20100701
  2. ZOLOFT [Suspect]
     Indication: DEPRESSION

REACTIONS (4)
  - DIZZINESS [None]
  - FEELING DRUNK [None]
  - PHOBIA OF DRIVING [None]
  - WEIGHT INCREASED [None]
